FAERS Safety Report 8503903 (Version 3)
Quarter: 2014Q2

REPORT INFORMATION
  Report Type: Spontaneous
  Country: US (occurrence: US)
  Receive Date: 20120411
  Receipt Date: 20140619
  Transmission Date: 20141212
  Serious: No
  Sender: FDA-Public Use
  Company Number: US-PFIZER INC-2011050253

PATIENT
  Age: 57 Year
  Sex: Female
  Weight: 141.95 kg

DRUGS (6)
  1. EFFEXOR XR [Suspect]
     Indication: FIBROMYALGIA
     Dosage: 187.5 MG, 1X/DAY
     Route: 048
     Dates: start: 200609, end: 2012
  2. EFFEXOR XR [Suspect]
     Dosage: 225 MG, 1X/DAY
     Route: 048
     Dates: start: 2012, end: 2012
  3. EFFEXOR XR [Suspect]
     Dosage: 225 MG, UNK
     Dates: start: 2012, end: 20120404
  4. NAPROXEN [Concomitant]
     Indication: OSTEOARTHRITIS
     Dosage: 500 MG, UNK
  5. FLEXERIL [Concomitant]
     Dosage: UNK
  6. LYRICA [Concomitant]
     Dosage: UNK

REACTIONS (10)
  - Depressed mood [Recovered/Resolved]
  - Feeling abnormal [Recovered/Resolved]
  - Nausea [Not Recovered/Not Resolved]
  - Malaise [Not Recovered/Not Resolved]
  - Diarrhoea [Not Recovered/Not Resolved]
  - Abdominal discomfort [Not Recovered/Not Resolved]
  - Headache [Not Recovered/Not Resolved]
  - Hyperhidrosis [Not Recovered/Not Resolved]
  - Abdominal pain upper [Unknown]
  - Vomiting [Unknown]
